FAERS Safety Report 7731122-5 (Version None)
Quarter: 2011Q3

REPORT INFORMATION
  Report Type: 
  Country: None (occurrence: None)
  Receive Date: 20110906
  Receipt Date: 20110906
  Transmission Date: 20111222
  Serious: No
  Sender: FDA-Public Use
  Company Number: None

PATIENT
  Age: 43 Year
  Sex: Female
  Weight: 72.574 kg

DRUGS (1)
  1. MONODOX [Suspect]
     Indication: ROSACEA

REACTIONS (1)
  - INSOMNIA [None]
